FAERS Safety Report 12989799 (Version 1)
Quarter: 2016Q4

REPORT INFORMATION
  Report Type: Spontaneous
  Country: US (occurrence: US)
  Receive Date: 20161201
  Receipt Date: 20161201
  Transmission Date: 20170207
  Serious: Yes (Life-Threatening, Other)
  Sender: FDA-Public Use
  Company Number: US-CLINIGEN GROUP PLC/ CLINIGEN HEALTHCARE LTD-E2B_00004230

PATIENT
  Age: 27 Year
  Sex: Male

DRUGS (12)
  1. CARAFATE [Concomitant]
     Active Substance: SUCRALFATE
     Dosage: DOSE: 1  TOTAL DAILY DOSE: 4
     Route: 065
  2. EPOGEN [Concomitant]
     Active Substance: ERYTHROPOIETIN
     Indication: ANAEMIA
     Dosage: DOSE: 10000
     Route: 065
  3. CIPRO [Concomitant]
     Active Substance: CIPROFLOXACIN HYDROCHLORIDE
     Dosage: DOSE: 750 MG TOTAL DAILY DOSE: 1500 MG
     Route: 065
  4. POTASSIUM CHLORIDE (GIVEN WITH D5 1/2NS) [Concomitant]
     Indication: UNEVALUABLE EVENT
     Route: 042
  5. CLOFAZIMINE [Concomitant]
     Active Substance: CLOFAZIMINE
     Dosage: DOSE: 100 MG TOTAL DAILY DOSE: 200 MG
     Route: 065
  6. NORMAL SALINE [Concomitant]
     Active Substance: SODIUM CHLORIDE
     Indication: FLUID REPLACEMENT
     Dosage: DOSE: 500  TOTAL DAILY DOSE: 1500
     Route: 042
  7. PEPCID [Concomitant]
     Active Substance: FAMOTIDINE
     Indication: PEPTIC ULCER
     Dosage: DOSE: 20 MG TOTAL DAILY DOSE: 40 MG
     Route: 065
  8. BACTRIM DS [Concomitant]
     Active Substance: SULFAMETHOXAZOLE\TRIMETHOPRIM
     Dosage: DOSE: 1
     Route: 065
  9. ETHAMBUTOL [Concomitant]
     Active Substance: ETHAMBUTOL HYDROCHLORIDE
     Dosage: DOSE: 800 MG TOTAL DAILY DOSE: 800 MG
     Route: 065
  10. FOSCAVIR [Suspect]
     Active Substance: FOSCARNET SODIUM
     Indication: CYTOMEGALOVIRUS CHORIORETINITIS
     Dosage: DOSE: 2500 MG TOTAL DAILY DOSE: 7500 MG
     Route: 042
     Dates: start: 19931201, end: 19931206
  11. D5 1/2NS (GIVEN WITH POTASSIUM CHLORIDE) [Concomitant]
     Dosage: DOSE: 50
     Route: 042
  12. FLUCONAZOLE. [Concomitant]
     Active Substance: FLUCONAZOLE
     Dosage: DOSE: 100 MG TOTAL DAILY DOSE: 100 MG
     Route: 065

REACTIONS (8)
  - Ventricular tachycardia [Recovered/Resolved]
  - Hypocalcaemia [Recovered/Resolved]
  - Neutropenia [Unknown]
  - Sinus tachycardia [Not Recovered/Not Resolved]
  - Pancytopenia [Unknown]
  - Ventricular fibrillation [Recovered/Resolved]
  - Cardiac arrest [Recovered/Resolved]
  - Electrolyte imbalance [Recovered/Resolved]

NARRATIVE: CASE EVENT DATE: 19931206
